FAERS Safety Report 8506297-0 (Version None)
Quarter: 2012Q3

REPORT INFORMATION
  Report Type: 
  Country: None (occurrence: None)
  Receive Date: 20120705
  Receipt Date: 20120705
  Transmission Date: 20120928
  Serious: Yes (Life-Threatening, Hospitalization, Disabling, Other)
  Sender: FDA-Public Use
  Company Number: None

PATIENT
  Age: 78 Year
  Sex: Female
  Weight: 72.5755 kg

DRUGS (1)
  1. IMIPRAMINE HCL [Suspect]
     Indication: ANTIDEPRESSANT THERAPY
     Dosage: 50MG QHS PO
     Route: 048
     Dates: start: 20100101, end: 20120704

REACTIONS (24)
  - ASTHENIA [None]
  - PRODUCT COATING ISSUE [None]
  - YELLOW SKIN [None]
  - PAIN [None]
  - ABDOMINAL DISTENSION [None]
  - NAUSEA [None]
  - DIZZINESS [None]
  - DYSPNOEA [None]
  - GASTRIC DISORDER [None]
  - SKIN DISCOLOURATION [None]
  - BLOOD PRESSURE INCREASED [None]
  - BEDRIDDEN [None]
  - DEHYDRATION [None]
  - HEART RATE INCREASED [None]
  - ANAEMIA [None]
  - APHAGIA [None]
  - HEPATIC ENZYME INCREASED [None]
  - LETHARGY [None]
  - DYSGEUSIA [None]
  - TOXICITY TO VARIOUS AGENTS [None]
  - LIVER INJURY [None]
  - HEADACHE [None]
  - PRODUCT TASTE ABNORMAL [None]
  - HYPERHIDROSIS [None]
